FAERS Safety Report 5232133-4 (Version None)
Quarter: 2007Q1

REPORT INFORMATION
  Report Type: 
  Country: None (occurrence: None)
  Receive Date: 20061201
  Receipt Date: 20061025
  Transmission Date: 20070707
  Serious: No
  Sender: FDA-Public Use
  Company Number: US200610005222

PATIENT
  Age: 33 Year
  Sex: Female

DRUGS (2)
  1. CYMBALTA [Suspect]
     Dosage: SEE IMAGE
     Route: 048
     Dates: start: 20060706, end: 20060712
  2. CYMBALTA [Suspect]
     Dosage: SEE IMAGE
     Route: 048
     Dates: start: 20060713, end: 20060720

REACTIONS (2)
  - EMERGENCY CARE EXAMINATION [None]
  - SUICIDAL IDEATION [None]
